FAERS Safety Report 11676689 (Version 1)
Quarter: 2015Q4

REPORT INFORMATION
  Report Type: Spontaneous
  Country: US (occurrence: US)
  Receive Date: 20151027
  Receipt Date: 20151027
  Transmission Date: 20160304
  Serious: No
  Sender: FDA-Public Use
  Company Number: US-ELI_LILLY_AND_COMPANY-US201003001319

PATIENT
  Sex: Female

DRUGS (1)
  1. FORTEO [Suspect]
     Active Substance: TERIPARATIDE
     Indication: OSTEOPOROSIS
     Dosage: 20 UG, DAILY (1/D)
     Route: 065

REACTIONS (10)
  - Erythema [Unknown]
  - Fatigue [Unknown]
  - Fall [Unknown]
  - Joint injury [Unknown]
  - Skin irritation [Unknown]
  - Shoulder operation [Unknown]
  - Weight increased [Not Recovered/Not Resolved]
  - Chills [Not Recovered/Not Resolved]
  - Hypersensitivity [Unknown]
  - Musculoskeletal pain [Unknown]

NARRATIVE: CASE EVENT DATE: 20100313
